FAERS Safety Report 20400565 (Version 2)
Quarter: 2022Q1

REPORT INFORMATION
  Report Type: Spontaneous
  Country: US (occurrence: US)
  Receive Date: 20220131
  Receipt Date: 20220201
  Transmission Date: 20220423
  Serious: No
  Sender: FDA-Public Use
  Company Number: US-ABBVIE-21K-163-4031197-00

PATIENT
  Sex: Female
  Weight: 53.572 kg

DRUGS (1)
  1. HUMIRA [Suspect]
     Active Substance: ADALIMUMAB
     Indication: Uveitis
     Dosage: HUMIRA STARTED LESS THAN TWO YEARS AGO
     Route: 058

REACTIONS (2)
  - Osteoporosis [Recovering/Resolving]
  - Pain [Not Recovered/Not Resolved]
